FAERS Safety Report 9069522 (Version 3)
Quarter: 2013Q3

REPORT INFORMATION
  Report Type: Spontaneous
  Country: US (occurrence: US)
  Receive Date: 20130215
  Receipt Date: 20130827
  Transmission Date: 20140515
  Serious: Yes (Hospitalization, Other)
  Sender: FDA-Public Use
  Company Number: US-B.I. PHARMACEUTICALS,INC./RIDGEFIELD-2013-BI-03927BP

PATIENT
  Age: 82 Year
  Sex: Male
  Weight: 90.72 kg

DRUGS (7)
  1. PRADAXA [Suspect]
     Indication: ATRIAL FIBRILLATION
     Dosage: 300 MG
     Route: 048
     Dates: start: 20110910, end: 20120222
  2. PRADAXA [Suspect]
     Indication: ANTICOAGULANT THERAPY
  3. LOSARTAN [Concomitant]
     Dosage: 50 MG
     Route: 048
     Dates: start: 2009
  4. NITROGLYCERIN [Concomitant]
     Route: 060
  5. NYSTATIN [Concomitant]
     Route: 061
  6. SAW PALMETTO [Concomitant]
     Route: 048
  7. TRIAMCINOLONE ACETONIDE [Concomitant]
     Route: 061

REACTIONS (3)
  - Upper gastrointestinal haemorrhage [Unknown]
  - Haemorrhage [Unknown]
  - Dysphagia [Unknown]
